FAERS Safety Report 4365753-X (Version None)
Quarter: 2004Q2

REPORT INFORMATION
  Report Type: 
  Country: None (occurrence: None)
  Receive Date: 20040527
  Receipt Date: 20040517
  Transmission Date: 20050107
  Serious: Yes (Other)
  Sender: FDA-Public Use
  Company Number: 200411715JP

PATIENT
  Age: 73 Year
  Sex: Female

DRUGS (2)
  1. TAXOTERE [Suspect]
     Indication: UTERINE CANCER
     Dosage: DOSE: UNK
     Route: 041
  2. CARBOPLATIN [Suspect]
     Indication: UTERINE CANCER

REACTIONS (4)
  - ANURIA [None]
  - DEPRESSED LEVEL OF CONSCIOUSNESS [None]
  - MENINGITIS [None]
  - NEPHROPATHY TOXIC [None]
